FAERS Safety Report 8845341 (Version 1)
Quarter: 2012Q4

REPORT INFORMATION
  Report Type: Spontaneous
  Country: JP (occurrence: None)
  Receive Date: 20121015
  Receipt Date: 20121015
  Transmission Date: 20130627
  Serious: Yes (Disabling)
  Sender: FDA-Public Use
  Company Number: AE-SPE-2012-017

PATIENT
  Age: 3 Year
  Sex: Female

DRUGS (1)
  1. MEIACT MS FINE GRANULES (CEFDITOREN PIVOXIL) [Suspect]
     Route: 048
     Dates: start: 20120918, end: 20120920

REACTIONS (5)
  - Abdominal pain [None]
  - Diarrhoea [None]
  - Melaena [None]
  - Rhinorrhoea [None]
  - Stevens-Johnson syndrome [None]
